FAERS Safety Report 6871573-4 (Version None)
Quarter: 2010Q3

REPORT INFORMATION
  Report Type: 
  Country: None (occurrence: None)
  Receive Date: 20100723
  Receipt Date: 20100716
  Transmission Date: 20110219
  Serious: Yes (Hospitalization, Other)
  Sender: FDA-Public Use
  Company Number: PHHO2010GB08837

PATIENT
  Sex: Female

DRUGS (12)
  1. AFINITOR [Suspect]
     Indication: ACUTE MYELOID LEUKAEMIA
     Dosage: UNK
     Route: 048
     Dates: start: 20100519, end: 20100523
  2. ARA-C [Suspect]
     Indication: ACUTE MYELOID LEUKAEMIA
     Dosage: UNK
     Dates: start: 20100519, end: 20100523
  3. VANCOMYCIN [Concomitant]
  4. ACYCLOVIR [Concomitant]
  5. MEROPENEM [Concomitant]
  6. ONDANSETRON [Concomitant]
  7. POTASSIUM CHLORIDE [Concomitant]
  8. CYCLIZINE [Concomitant]
  9. LOPERAMIDE [Concomitant]
  10. NOZINAN [Concomitant]
  11. ITRACONAZOLE [Concomitant]
  12. ZOPICLON [Concomitant]

REACTIONS (3)
  - DRUG INTERACTION [None]
  - FUNGAL INFECTION [None]
  - HYPOPHOSPHATAEMIA [None]
